FAERS Safety Report 11384706 (Version 1)
Quarter: 2015Q3

REPORT INFORMATION
  Report Type: Spontaneous
  Country: US (occurrence: US)
  Receive Date: 20150811
  Receipt Date: 20150811
  Transmission Date: 20151125
  Serious: Yes (Hospitalization, Other)
  Sender: FDA-Public Use
  Company Number: US-ELI_LILLY_AND_COMPANY-US201108001337

PATIENT
  Age: 68 Year
  Sex: Male

DRUGS (3)
  1. CIALIS [Suspect]
     Active Substance: TADALAFIL
     Dosage: 5 MG, UNK
     Dates: start: 201102
  2. LISINOPRIL. [Concomitant]
     Active Substance: LISINOPRIL
  3. CIALIS [Suspect]
     Active Substance: TADALAFIL
     Dosage: 2.5 MG, UNK
     Dates: end: 20110531

REACTIONS (1)
  - Syncope [Unknown]

NARRATIVE: CASE EVENT DATE: 20110531
